FAERS Safety Report 21305349 (Version 1)
Quarter: 2022Q3

REPORT INFORMATION
  Report Type: Spontaneous
  Country: US (occurrence: US)
  Receive Date: 20220908
  Receipt Date: 20220908
  Transmission Date: 20221026
  Serious: Yes (Hospitalization)
  Sender: FDA-Public Use
  Company Number: None

PATIENT
  Age: 82 Year
  Sex: Female

DRUGS (6)
  1. PREDNISONE [Suspect]
     Active Substance: PREDNISONE
     Indication: Polymyalgia rheumatica
     Route: 048
     Dates: start: 20220801
  2. PREDNISONE [Suspect]
     Active Substance: PREDNISONE
     Indication: Giant cell arteritis
  3. METOPROLOL SUCCINATE [Concomitant]
     Active Substance: METOPROLOL SUCCINATE
     Indication: Blood pressure measurement
     Route: 048
  4. METOPROLOL SUCCINATE [Concomitant]
     Active Substance: METOPROLOL SUCCINATE
     Route: 048
  5. ENALAPRIL MALEATE [Concomitant]
     Active Substance: ENALAPRIL MALEATE
     Indication: Blood pressure measurement
     Dosage: 7 AND A HALF MG
     Route: 048
  6. ENALAPRIL MALEATE [Concomitant]
     Active Substance: ENALAPRIL MALEATE
     Route: 048

REACTIONS (3)
  - Oedema peripheral [Not Recovered/Not Resolved]
  - Joint swelling [Not Recovered/Not Resolved]
  - Peripheral swelling [Not Recovered/Not Resolved]

NARRATIVE: CASE EVENT DATE: 20220813
